FAERS Safety Report 6572737-X (Version None)
Quarter: 2010Q1

REPORT INFORMATION
  Report Type: 
  Country: None (occurrence: None)
  Receive Date: 20100205
  Receipt Date: 20100128
  Transmission Date: 20100710
  Serious: Yes (Other)
  Sender: FDA-Public Use
  Company Number: PHHY2009GB41748

PATIENT
  Sex: Female
  Weight: 54.6 kg

DRUGS (4)
  1. ACLASTA [Suspect]
     Indication: OSTEOPOROSIS
     Dosage: 5 MG, UNK
     Dates: start: 20080702
  2. CALCIUM WITH VITAMIN D [Concomitant]
     Indication: OSTEOPOROSIS
     Dosage: 1 DF, BID
     Route: 048
  3. TRAMADOL [Concomitant]
     Dosage: UNK
  4. CO-CODAMOL [Concomitant]

REACTIONS (5)
  - BLOOD ALKALINE PHOSPHATASE INCREASED [None]
  - DIVERTICULITIS [None]
  - OSTEOARTHRITIS [None]
  - RASH [None]
  - TONGUE GEOGRAPHIC [None]
